FAERS Safety Report 10337222 (Version 2)
Quarter: 2014Q3

REPORT INFORMATION
  Report Type: Spontaneous
  Country: US (occurrence: US)
  Receive Date: 20140723
  Receipt Date: 20140916
  Transmission Date: 20150326
  Serious: Yes (Hospitalization, Other)
  Sender: FDA-Public Use
  Company Number: US-PFIZER INC-2014205253

PATIENT
  Age: 54 Year
  Sex: Male
  Weight: 102.4 kg

DRUGS (2)
  1. TESTOSTERONE. [Concomitant]
     Active Substance: TESTOSTERONE
     Dosage: UNK
  2. VIAGRA [Suspect]
     Active Substance: SILDENAFIL CITRATE
     Indication: ERECTILE DYSFUNCTION
     Dosage: 300 TO 500 MG, AS NEEDED
     Route: 048
     Dates: start: 2008

REACTIONS (3)
  - Incorrect dose administered [Unknown]
  - Arthropathy [Unknown]
  - Diverticulitis [Unknown]

NARRATIVE: CASE EVENT DATE: 2008
